FAERS Safety Report 5172655-8 (Version None)
Quarter: 2006Q4

REPORT INFORMATION
  Report Type: 
  Country: None (occurrence: None)
  Receive Date: 20061205
  Receipt Date: 20061128
  Transmission Date: 20070319
  Serious: Yes (Other)
  Sender: FDA-Public Use
  Company Number: 2006-08-0707

PATIENT
  Age: 55 Year
  Sex: Male
  Weight: 74 kg

DRUGS (12)
  1. PEG-INTRON [Suspect]
     Indication: HEPATITIS C
     Dosage: 80 MCG; QW; SC
     Route: 058
     Dates: start: 20060408, end: 20060805
  2. REBETOL [Suspect]
     Indication: HEPATITIS C
     Dosage: 800 MG; QD; PO
     Route: 048
     Dates: start: 20060408, end: 20060805
  3. ADALAT [Concomitant]
  4. NU-LOTAN [Concomitant]
  5. URSO [Concomitant]
  6. TANTALICK [Concomitant]
  7. EUGLUCON [Concomitant]
  8. GLUCOBAY [Concomitant]
  9. METFORMIN HCL [Concomitant]
  10. LENDORMIN [Concomitant]
  11. VOLTAREN [Concomitant]
  12. COMELIAN [Concomitant]

REACTIONS (4)
  - DYSKINESIA [None]
  - MYOCLONUS [None]
  - NEURODEGENERATIVE DISORDER [None]
  - TREMOR [None]
